FAERS Safety Report 16520702 (Version 2)
Quarter: 2019Q3

REPORT INFORMATION
  Report Type: Report from Study
  Country: JP (occurrence: JP)
  Receive Date: 20190702
  Receipt Date: 20190912
  Transmission Date: 20191004
  Serious: Yes (Other)
  Sender: FDA-Public Use
  Company Number: JP-JNJFOC-20150310691

PATIENT
  Age: 49 Year
  Sex: Male

DRUGS (7)
  1. EPZICOM [Suspect]
     Active Substance: ABACAVIR SULFATE\LAMIVUDINE
     Indication: HIV INFECTION
     Route: 048
     Dates: start: 20140314, end: 20181231
  2. EDURANT [Suspect]
     Active Substance: RILPIVIRINE HYDROCHLORIDE
     Indication: HIV INFECTION
     Dosage: RILPIVIRINE HYDROCHLORIDE: 25 MG
     Route: 048
     Dates: start: 20121018, end: 20181231
  3. TRUVADA [Suspect]
     Active Substance: EMTRICITABINE\TENOFOVIR DISOPROXIL FUMARATE
     Indication: HIV INFECTION
     Route: 048
     Dates: start: 20070514, end: 20140313
  4. EPIVIR [Concomitant]
     Active Substance: LAMIVUDINE
     Indication: HIV INFECTION
     Route: 048
     Dates: start: 20050206, end: 20070513
  5. EMTRICITABINE/RILPIVIRINE/TENOFOVIR ALAFENAMIDE TABLET [Concomitant]
     Indication: HIV INFECTION
     Route: 048
     Dates: start: 20190101
  6. VIREAD [Concomitant]
     Active Substance: TENOFOVIR DISOPROXIL FUMARATE
     Indication: HIV INFECTION
     Route: 048
     Dates: start: 20050206, end: 20070513
  7. STOCRIN [Concomitant]
     Active Substance: EFAVIRENZ
     Indication: HIV INFECTION
     Route: 048
     Dates: start: 20050206, end: 20121017

REACTIONS (4)
  - Amoebic dysentery [Recovered/Resolved]
  - Protein urine present [Recovering/Resolving]
  - Irritable bowel syndrome [Recovering/Resolving]
  - Beta 2 microglobulin urine increased [Recovering/Resolving]

NARRATIVE: CASE EVENT DATE: 20131227
